FAERS Safety Report 6879576-0 (Version None)
Quarter: 2010Q3

REPORT INFORMATION
  Report Type: 
  Country: None (occurrence: None)
  Receive Date: 20100728
  Receipt Date: 20100721
  Transmission Date: 20110219
  Serious: No
  Sender: FDA-Public Use
  Company Number: JP-BAYER-201012391BYL

PATIENT
  Age: 58 Year
  Sex: Male
  Weight: 63 kg

DRUGS (3)
  1. MAGNEVIST [Suspect]
     Indication: NUCLEAR MAGNETIC RESONANCE IMAGING BRAIN
     Dosage: INFUSION SITE:RIGHT UPPER ARM
     Route: 042
     Dates: start: 20100114, end: 20100114
  2. MAGNEVIST (SUSPECTED) [Suspect]
     Indication: NUCLEAR MAGNETIC RESONANCE IMAGING
     Dosage: DOUBLE DOSE
     Route: 065
     Dates: start: 20081001, end: 20081001
  3. MAGNESCOPE [Suspect]
     Indication: NUCLEAR MAGNETIC RESONANCE IMAGING BRAIN
     Dosage: INFUSION SITE:RIGHT FOREARM
     Route: 042
     Dates: start: 20100428, end: 20100428

REACTIONS (1)
  - INJECTION SITE PHLEBITIS [None]
